FAERS Safety Report 8997702 (Version 1)
Quarter: 2013Q1

REPORT INFORMATION
  Report Type: Spontaneous
  Country: US (occurrence: US)
  Receive Date: 20130104
  Receipt Date: 20130104
  Transmission Date: 20140127
  Serious: Yes (Hospitalization)
  Sender: FDA-Public Use
  Company Number: US-AMGEN-USASP2012084363

PATIENT
  Age: 70 Year
  Sex: Female
  Weight: 40.4 kg

DRUGS (7)
  1. PEGFILGRASTIM [Suspect]
     Indication: BREAST CANCER
     Dosage: 6 MG, ON DAY 2
     Route: 058
     Dates: start: 20090906
  2. BEVACIZUMAB [Suspect]
     Indication: BREAST CANCER
     Dosage: 10 MG/KG, OVER 20-30 MIN ON DAY 1
     Route: 042
     Dates: start: 20090906
  3. BEVACIZUMAB [Suspect]
     Dosage: 15 MG/KG, OVER 20-30 MIN ON DAY 1
     Route: 042
     Dates: start: 20090906
  4. DOXORUBICIN [Suspect]
     Indication: BREAST CANCER
     Dosage: 60 MG/M2, ON DAY 1
     Route: 042
     Dates: start: 20090906
  5. PACLITAXEL [Suspect]
     Indication: BREAST CANCER
     Dosage: 80 MG/KG, KG, OVER 1 HR ON DAYS 1, 8 AND 15
     Route: 042
     Dates: start: 20090906
  6. AUGMENTIN [Suspect]
     Indication: BREAST CANCER
     Dosage: UNK
  7. CYCLOPHOSPHAMIDE [Suspect]
     Indication: BREAST CANCER
     Dosage: 600 MG/M2, M2, OVER 20-30 MIN ON DAY 1
     Route: 042
     Dates: start: 20090906

REACTIONS (1)
  - Clostridium difficile infection [Recovered/Resolved]
